FAERS Safety Report 7900978-5 (Version None)
Quarter: 2011Q4

REPORT INFORMATION
  Report Type: 
  Country: None (occurrence: None)
  Receive Date: 20111104
  Receipt Date: 20111027
  Transmission Date: 20120403
  Serious: Yes (Life-Threatening)
  Sender: FDA-Public Use
  Company Number: AUR-APL-2011-05612

PATIENT
  Sex: Male

DRUGS (11)
  1. HYOSCINE HYDROBROMIDE (HYOSCINE HYDROBROMIDE) [Concomitant]
  2. LOPERAMIDE [Concomitant]
  3. DIPYRIDAMOLE (DIPYRIDAMOLE0 [Concomitant]
  4. BENZODIAZEPINES NOS (BENZODIAZEPINE DERIVATIVES) [Concomitant]
  5. AUGMENTIN '125' [Concomitant]
  6. CLOZAPINE [Concomitant]
  7. ASPIRIN [Concomitant]
  8. OMEPRAZOLE [Concomitant]
  9. MIRTAZAPINE [Suspect]
     Indication: DEPRESSED MOOD
     Dosage: 15 MG (15 MG, 1 IN 1 D), ORAL  30 MG (30 MG, 1 IN 1 D), ORAL
     Route: 048
     Dates: start: 20111006, end: 20111010
  10. MIRTAZAPINE [Suspect]
     Indication: DEPRESSED MOOD
     Dosage: 15 MG (15 MG, 1 IN 1 D), ORAL  30 MG (30 MG, 1 IN 1 D), ORAL
     Route: 048
     Dates: start: 20111003, end: 20111006
  11. SIMVASTATIN [Concomitant]

REACTIONS (1)
  - NEUROLEPTIC MALIGNANT SYNDROME [None]
